FAERS Safety Report 16035105 (Version 1)
Quarter: 2019Q1

REPORT INFORMATION
  Report Type: Spontaneous
  Country: US (occurrence: US)
  Receive Date: 20190305
  Receipt Date: 20190305
  Transmission Date: 20190418
  Serious: No
  Sender: FDA-Public Use
  Company Number: US-TEVA-2019-US-1010713

PATIENT
  Age: 59 Year
  Sex: Male

DRUGS (3)
  1. OXYCODONE TEVA [Suspect]
     Active Substance: OXYCODONE HYDROCHLORIDE
     Route: 065
  2. GABAPENTIN. [Concomitant]
     Active Substance: GABAPENTIN
  3. NEURONTIN [Concomitant]
     Active Substance: GABAPENTIN

REACTIONS (2)
  - Product quality issue [Unknown]
  - Drug ineffective [Unknown]
